FAERS Safety Report 7374633 (Version 2)
Quarter: 2013Q1

REPORT INFORMATION
  Report Type: Spontaneous
  Country: US (occurrence: US)
  Receive Date: 20100503
  Receipt Date: 20130201
  Transmission Date: 20140127
  Serious: Yes (Other)
  Sender: FDA-Public Use
  Company Number: US-ASTRAZENECA-2009SE20229

PATIENT
  Age: 49 Year
  Sex: Female

DRUGS (6)
  1. NEXIUM [Suspect]
     Indication: GASTROOESOPHAGEAL REFLUX DISEASE
     Route: 048
  2. TRICOR [Concomitant]
  3. SYNTHROID [Concomitant]
  4. PRIMARIN [Concomitant]
  5. CYMBALTA [Concomitant]
  6. ENTOCORT EC [Concomitant]
     Route: 048

REACTIONS (3)
  - Neoplasm malignant [Unknown]
  - Crohn^s disease [Recovered/Resolved]
  - Throat irritation [Recovered/Resolved]
